FAERS Safety Report 7575344-5 (Version None)
Quarter: 2011Q2

REPORT INFORMATION
  Report Type: 
  Country: None (occurrence: None)
  Receive Date: 20110627
  Receipt Date: 20110623
  Transmission Date: 20111010
  Serious: Yes (Disabling)
  Sender: FDA-Public Use
  Company Number: IT-PFIZER INC-2011142033

PATIENT
  Age: 52 Year
  Sex: Female

DRUGS (1)
  1. MEDROL [Suspect]
     Route: 048

REACTIONS (4)
  - NAUSEA [None]
  - MALAISE [None]
  - INJURY [None]
  - VERTIGO [None]
